FAERS Safety Report 9404222 (Version 4)
Quarter: 2013Q3

REPORT INFORMATION
  Report Type: Spontaneous
  Country: IT (occurrence: IT)
  Receive Date: 20130717
  Receipt Date: 20130930
  Transmission Date: 20140515
  Serious: Yes (Hospitalization)
  Sender: FDA-Public Use
  Company Number: IT-US-EMD SERONO, INC.-7222874

PATIENT
  Age: 61 Year
  Sex: Male

DRUGS (8)
  1. SOMATROPIN [Suspect]
     Indication: BLOOD GROWTH HORMONE DECREASED
     Route: 058
     Dates: start: 20020101, end: 20130410
  2. TESTOSTERONE ENANTHATE [Suspect]
     Indication: SECONDARY HYPOGONADISM
     Route: 030
     Dates: start: 20120201, end: 20130307
  3. SUSTANON 250 [Suspect]
     Indication: SECONDARY HYPOGONADISM
     Dosage: 1 BOTTLE EVERY 28 DAYS
     Route: 030
     Dates: start: 20010601, end: 201202
  4. CORTONE [Concomitant]
     Indication: PRODUCT USED FOR UNKNOWN INDICATION
  5. LEVOTHYROXINE SODIUM [Concomitant]
     Indication: PRODUCT USED FOR UNKNOWN INDICATION
  6. SIMVASTATIN [Concomitant]
     Indication: PRODUCT USED FOR UNKNOWN INDICATION
  7. COLECALCIFEROL [Concomitant]
     Indication: PRODUCT USED FOR UNKNOWN INDICATION
  8. CALCIUM CARBONATE [Concomitant]
     Indication: PRODUCT USED FOR UNKNOWN INDICATION

REACTIONS (1)
  - Prostate cancer [Not Recovered/Not Resolved]
